FAERS Safety Report 25856777 (Version 4)
Quarter: 2025Q4

REPORT INFORMATION
  Report Type: Spontaneous
  Country: EU (occurrence: EU)
  Receive Date: 20250929
  Receipt Date: 20251024
  Transmission Date: 20260118
  Serious: Yes (Life-Threatening, Hospitalization)
  Sender: MERCK SHARP & DOHME LLC
  Company Number: EU-009507513-2331403

PATIENT
  Age: 64 Year
  Sex: Male

DRUGS (17)
  1. SUGAMMADEX [Suspect]
     Active Substance: SUGAMMADEX
     Indication: Extubation
  2. ROCURONIUM [Concomitant]
     Active Substance: ROCURONIUM BROMIDE
     Indication: Induction of anaesthesia
  3. HEPARIN [Concomitant]
     Active Substance: HEPARIN SODIUM
     Indication: Anticoagulant therapy
  4. BISOPROLOL [Concomitant]
     Active Substance: BISOPROLOL
     Indication: Product used for unknown indication
  5. FLECAINIDE [Concomitant]
     Active Substance: FLECAINIDE
     Indication: Product used for unknown indication
  6. APIXABAN [Concomitant]
     Active Substance: APIXABAN
     Indication: Product used for unknown indication
  7. DEXKETOPROFEN [Concomitant]
     Active Substance: DEXKETOPROFEN
     Indication: Cardiac ablation
  8. DOXAPRAM [Concomitant]
     Active Substance: DOXAPRAM
     Indication: Extubation
  9. DEXAMETHASONE [Concomitant]
     Active Substance: DEXAMETHASONE
     Indication: Cardiac ablation
  10. PROTAMINE [Concomitant]
     Active Substance: PROTAMINE
     Indication: Heparin neutralisation therapy
     Dosage: TIME INTERVAL: TOTAL: SLOWLY ADMINISTERED 50 MG (A SINGLE 5 ML VIAL, WITH THE EQUIVALENT OF 7000 ...
  11. MIDAZOLAM [Concomitant]
     Active Substance: MIDAZOLAM
     Indication: Induction of anaesthesia
  12. PROPOFOL [Concomitant]
     Active Substance: PROPOFOL
     Indication: Induction of anaesthesia
  13. ONDANSETRON [Concomitant]
     Active Substance: ONDANSETRON
     Indication: Cardiac ablation
  14. FLUMAZENIL [Concomitant]
     Active Substance: FLUMAZENIL
     Indication: Cardiac ablation
  15. FENTANYL [Concomitant]
     Active Substance: FENTANYL
     Indication: Induction of anaesthesia
  16. ACETAMINOPHEN [Concomitant]
     Active Substance: ACETAMINOPHEN
     Indication: Cardiac ablation
  17. PHENYLEPHRINE [Concomitant]
     Active Substance: PHENYLEPHRINE
     Indication: Cardiac ablation

REACTIONS (1)
  - Kounis syndrome [Recovered/Resolved]
